FAERS Safety Report 17900165 (Version 2)
Quarter: 2020Q3

REPORT INFORMATION
  Report Type: Spontaneous
  Country: RS (occurrence: RS)
  Receive Date: 20200616
  Receipt Date: 20200713
  Transmission Date: 20201103
  Serious: Yes (Other)
  Sender: FDA-Public Use
  Company Number: RS-BAUSCH-BL-2020-017062

PATIENT
  Age: 29 Year
  Sex: Female

DRUGS (18)
  1. METRONIDAZOLE. [Suspect]
     Active Substance: METRONIDAZOLE
     Indication: PNEUMONIA KLEBSIELLA
     Route: 065
  2. METRONIDAZOLE. [Suspect]
     Active Substance: METRONIDAZOLE
     Indication: ENDOCARDITIS
  3. VANCOMYCIN [Suspect]
     Active Substance: VANCOMYCIN
     Indication: PNEUMONIA KLEBSIELLA
     Route: 065
  4. MEROPENEM. [Suspect]
     Active Substance: MEROPENEM
     Indication: ENDOCARDITIS
  5. MEROPENEM. [Suspect]
     Active Substance: MEROPENEM
     Indication: ACINETOBACTER INFECTION
  6. LEVOFLOXACIN. [Suspect]
     Active Substance: LEVOFLOXACIN
     Indication: ACINETOBACTER INFECTION
  7. HEROIN [Concomitant]
     Active Substance: DIAMORPHINE
     Indication: PRODUCT USED FOR UNKNOWN INDICATION
     Route: 042
  8. LEVOFLOXACIN. [Suspect]
     Active Substance: LEVOFLOXACIN
     Indication: ENTEROBACTER INFECTION
  9. VANCOMYCIN [Suspect]
     Active Substance: VANCOMYCIN
     Indication: ACINETOBACTER INFECTION
  10. METHADONE [Concomitant]
     Active Substance: METHADONE HYDROCHLORIDE
     Indication: PRODUCT USED FOR UNKNOWN INDICATION
     Route: 042
  11. LEVOFLOXACIN. [Suspect]
     Active Substance: LEVOFLOXACIN
     Indication: PNEUMONIA KLEBSIELLA
     Route: 065
  12. LEVOFLOXACIN. [Suspect]
     Active Substance: LEVOFLOXACIN
     Indication: ENDOCARDITIS
  13. MEROPENEM. [Suspect]
     Active Substance: MEROPENEM
     Indication: PNEUMONIA KLEBSIELLA
     Route: 065
  14. MEROPENEM. [Suspect]
     Active Substance: MEROPENEM
     Indication: ENTEROBACTER INFECTION
  15. VANCOMYCIN [Suspect]
     Active Substance: VANCOMYCIN
     Indication: ENTEROBACTER INFECTION
  16. METRONIDAZOLE. [Suspect]
     Active Substance: METRONIDAZOLE
     Indication: ENTEROBACTER INFECTION
  17. VANCOMYCIN [Suspect]
     Active Substance: VANCOMYCIN
     Indication: ENDOCARDITIS
  18. METRONIDAZOLE. [Suspect]
     Active Substance: METRONIDAZOLE
     Indication: ACINETOBACTER INFECTION

REACTIONS (1)
  - Acute kidney injury [Recovered/Resolved]
